FAERS Safety Report 4708191-X (Version None)
Quarter: 2005Q3

REPORT INFORMATION
  Report Type: 
  Country: None (occurrence: None)
  Receive Date: 20050705
  Receipt Date: 20050705
  Transmission Date: 20060218
  Serious: Yes (Hospitalization)
  Sender: FDA-Public Use
  Company Number: None

PATIENT
  Sex: Male

DRUGS (2)
  1. VELCADE [Suspect]
     Indication: MANTLE CELL LYMPHOMA
     Dosage: IV D1 + D4 OF 21 DAY CYCLE
     Route: 042
     Dates: start: 20050614
  2. VELCADE [Suspect]
     Indication: MANTLE CELL LYMPHOMA
     Dosage: IV D1 + D4 OF 21 DAY CYCLE
     Route: 042
     Dates: start: 20050617

REACTIONS (2)
  - CARDIAC ARREST [None]
  - VENTRICULAR TACHYCARDIA [None]
